FAERS Safety Report 13373059 (Version 2)
Quarter: 2017Q1

REPORT INFORMATION
  Report Type: Spontaneous
  Country: DE (occurrence: DE)
  Receive Date: 20170327
  Receipt Date: 20170328
  Transmission Date: 20170429
  Serious: Yes (Hospitalization, Other)
  Sender: FDA-Public Use
  Company Number: DE-JNJFOC-20170325223

PATIENT
  Sex: Male

DRUGS (2)
  1. XARELTO [Suspect]
     Active Substance: RIVAROXABAN
     Indication: THROMBOPHLEBITIS SUPERFICIAL
     Route: 048
  2. XARELTO [Suspect]
     Active Substance: RIVAROXABAN
     Indication: THROMBOPHLEBITIS SUPERFICIAL
     Route: 048

REACTIONS (6)
  - Migrainous infarction [Unknown]
  - Migraine [Unknown]
  - Migraine [Unknown]
  - Migraine [Unknown]
  - Migraine [Unknown]
  - Neurological symptom [Not Recovered/Not Resolved]

NARRATIVE: CASE EVENT DATE: 201703
